FAERS Safety Report 8928376 (Version 2)
Quarter: 2012Q4

REPORT INFORMATION
  Report Type: 
  Country: AU (occurrence: AU)
  Receive Date: 20121127
  Receipt Date: 20121130
  Transmission Date: 20130627
  Serious: Yes (Hospitalization, Other)
  Sender: FDA-Public Use
  Company Number: AU-B.I. PHARMACEUTICALS,INC./RIDGEFIELD-2012-AU-01901AU

PATIENT
  Age: 77 Year
  Sex: Male
  Weight: 76 kg

DRUGS (8)
  1. PRADAXA [Suspect]
     Indication: ATRIAL FIBRILLATION
     Dosage: 220 mg
     Dates: start: 201106
  2. LIPITOR [Concomitant]
     Dosage: 80 mg
  3. PANADOL OSTEO [Concomitant]
     Dosage: 3990 mg
  4. AZOPT [Concomitant]
     Dosage: 1%, 10 mg/ 1 ml
     Route: 031
  5. COMBIGAN [Concomitant]
     Dosage: 1 BD both eyes
     Route: 031
  6. COVERSYL [Concomitant]
     Dosage: 2.5 mg
  7. DIABEX XR [Concomitant]
     Dosage: 1000 mg
     Route: 048
  8. FELDENE [Concomitant]
     Dosage: 40 mg
     Route: 048

REACTIONS (3)
  - Basal ganglia stroke [Recovered/Resolved]
  - Fall [Unknown]
  - Confusional state [Recovered/Resolved]
